FAERS Safety Report 8519528 (Version 5)
Quarter: 2015Q2

REPORT INFORMATION
  Report Type: Report from Study
  Country: DE (occurrence: DE)
  Receive Date: 20120418
  Receipt Date: 20150410
  Transmission Date: 20150821
  Serious: Yes (Hospitalization, Disabling)
  Sender: FDA-Public Use
  Company Number: PHHO2012DE005895

PATIENT
  Age: 75 Year
  Sex: Female
  Weight: 93 kg

DRUGS (18)
  1. ALISKIREN [Suspect]
     Active Substance: ALISKIREN
     Dosage: LEVEL 2
     Route: 048
     Dates: start: 20100511
  2. ENALAPRIL [Suspect]
     Active Substance: ENALAPRIL
     Dosage: NO TREATMENT
     Dates: start: 20110824
  3. ALISKIREN [Suspect]
     Active Substance: ALISKIREN
     Indication: CARDIAC FAILURE
     Dosage: LEVEL 1
     Route: 048
     Dates: start: 20100429
  4. ALISKIREN [Suspect]
     Active Substance: ALISKIREN
     Dosage: LEVEL 1
     Route: 048
     Dates: start: 20110929
  5. SPIRIVA [Concomitant]
     Active Substance: TIOTROPIUM BROMIDE MONOHYDRATE
     Indication: CHRONIC OBSTRUCTIVE PULMONARY DISEASE
     Dosage: 18 UG, UNK
     Route: 065
     Dates: start: 20100301
  6. THIAMAZOLE [Concomitant]
     Active Substance: METHIMAZOLE
     Indication: PRODUCT USED FOR UNKNOWN INDICATION
     Dosage: 20 MG, UNK
     Route: 065
     Dates: start: 20110629
  7. ENALAPRIL [Suspect]
     Active Substance: ENALAPRIL
     Dosage: LEVEL 2
     Route: 048
     Dates: start: 20100511
  8. LYRICA [Concomitant]
     Active Substance: PREGABALIN
     Indication: CARDIAC FAILURE CONGESTIVE
     Dosage: 1 TBI
     Route: 065
     Dates: start: 2005
  9. VIANI [Concomitant]
     Active Substance: FLUTICASONE PROPIONATE\SALMETEROL XINAFOATE
     Indication: CHRONIC OBSTRUCTIVE PULMONARY DISEASE
     Dosage: UNK
     Route: 055
     Dates: start: 20100301
  10. ENALAPRIL [Suspect]
     Active Substance: ENALAPRIL
     Dosage: LEVEL 1
     Route: 048
     Dates: start: 20110914
  11. NOVAMINSULFON [Concomitant]
     Active Substance: METAMIZOLE
     Indication: POLYNEUROPATHY
     Dosage: UNK
     Route: 065
     Dates: start: 20100301
  12. ENALAPRIL [Suspect]
     Active Substance: ENALAPRIL
     Dosage: LEVEL 2
     Route: 048
     Dates: start: 20111020
  13. ENALAPRIL [Suspect]
     Active Substance: ENALAPRIL
     Indication: CARDIAC FAILURE
     Dosage: LEVEL 1
     Route: 048
     Dates: start: 20100429
  14. MCP [Concomitant]
     Active Substance: METOCLOPRAMIDE HYDROCHLORIDE
     Indication: GASTROENTERITIS
     Dosage: UNK
     Route: 065
     Dates: start: 20101129
  15. PANTOZOL [Concomitant]
     Active Substance: PANTOPRAZOLE SODIUM
     Indication: PROPHYLAXIS
     Dosage: UNK
     Route: 065
     Dates: start: 20100824
  16. ALISKIREN [Suspect]
     Active Substance: ALISKIREN
     Dosage: NO TREATMENT
     Dates: start: 20110824
  17. ALISKIREN [Suspect]
     Active Substance: ALISKIREN
     Dosage: LEVEL 2
     Route: 048
     Dates: start: 20111020
  18. POLYHEXANIDE [Concomitant]
     Indication: PROPHYLAXIS
     Dosage: UNK
     Route: 065
     Dates: start: 20110527

REACTIONS (3)
  - Myelopathy [Not Recovered/Not Resolved]
  - Hemiparesis [Not Recovered/Not Resolved]
  - Spinal column stenosis [Recovered/Resolved with Sequelae]

NARRATIVE: CASE EVENT DATE: 20120402
